FAERS Safety Report 8374278-6 (Version None)
Quarter: 2012Q2

REPORT INFORMATION
  Report Type: 
  Country: None (occurrence: None)
  Receive Date: 20120518
  Receipt Date: 20120518
  Transmission Date: 20120825
  Serious: Yes (Hospitalization)
  Sender: FDA-Public Use
  Company Number: None

PATIENT
  Age: 65 Year
  Sex: Female
  Weight: 68.0396 kg

DRUGS (1)
  1. CLONIDINE [Suspect]
     Indication: HYPERTENSION
     Dosage: LOWEST TWICE A DAY
     Dates: start: 20120414, end: 20120424

REACTIONS (7)
  - GAIT DISTURBANCE [None]
  - MUSCLE DISORDER [None]
  - MOVEMENT DISORDER [None]
  - APHASIA [None]
  - DYSSTASIA [None]
  - SCREAMING [None]
  - BALANCE DISORDER [None]
